FAERS Safety Report 18461575 (Version 1)
Quarter: 2020Q4

REPORT INFORMATION
  Report Type: Spontaneous
  Country: FR (occurrence: FR)
  Receive Date: 20201104
  Receipt Date: 20201104
  Transmission Date: 20210114
  Serious: Yes (Hospitalization)
  Sender: FDA-Public Use
  Company Number: FR-TEVA-2020-FR-1844546

PATIENT
  Age: 19 Year
  Sex: Female
  Weight: 52 kg

DRUGS (1)
  1. TRAMADOL BASE [Suspect]
     Active Substance: TRAMADOL
     Indication: INTENTIONAL OVERDOSE
     Dosage: 2 GRAM
     Route: 048
     Dates: start: 20200909, end: 20200909

REACTIONS (4)
  - Somnolence [Recovered/Resolved]
  - Hyperthermia [Recovered/Resolved]
  - Vomiting [Recovered/Resolved]
  - Poisoning deliberate [Recovered/Resolved]

NARRATIVE: CASE EVENT DATE: 20200909
